FAERS Safety Report 8445586-5 (Version None)
Quarter: 2012Q2

REPORT INFORMATION
  Report Type: 
  Country: None (occurrence: None)
  Receive Date: 20120618
  Receipt Date: 20120608
  Transmission Date: 20120825
  Serious: Yes (Other)
  Sender: FDA-Public Use
  Company Number: IT-JNJFOC-20120518453

PATIENT

DRUGS (3)
  1. METHOTREXATE [Suspect]
     Indication: RHEUMATOID ARTHRITIS
     Dosage: (MEAN DOSAGE 12.7+ OR - 2.3 MG/W)
     Route: 065
  2. INFLIXIMAB, RECOMBINANT [Suspect]
     Indication: RHEUMATOID ARTHRITIS
     Route: 042
  3. CORTICOSTEROIDS [Suspect]
     Indication: RHEUMATOID ARTHRITIS
     Dosage: (MEAN DOSAGE 4.9+ OR - 2.2 MG)
     Route: 065

REACTIONS (2)
  - RESPIRATORY TRACT INFECTION [None]
  - HERPES ZOSTER [None]
